FAERS Safety Report 9221716 (Version 2)
Quarter: 2013Q2

REPORT INFORMATION
  Report Type: Spontaneous
  Country: IT (occurrence: None)
  Receive Date: 20130408
  Receipt Date: 20130422
  Transmission Date: 20140414
  Serious: Yes (Hospitalization)
  Sender: FDA-Public Use
  Company Number: 2013000080

PATIENT
  Age: 80 Year
  Sex: Female

DRUGS (3)
  1. ACEON (PERINDOPRIL ERBUMINE) TABLET [Suspect]
     Indication: HYPERTENSION
     Route: 048
     Dates: start: 20120101
  2. BAYPRESS (NITRENDIPINE) [Suspect]
     Route: 048
     Dates: start: 20120101
  3. CARDIRENE (ACETYLSALICYLATE LYSINE) [Concomitant]

REACTIONS (3)
  - Presyncope [None]
  - Balance disorder [None]
  - Hypotension [None]
